FAERS Safety Report 23674525 (Version 1)
Quarter: 2024Q1

REPORT INFORMATION
  Report Type: Report from Study
  Country: FR (occurrence: FR)
  Receive Date: 20240326
  Receipt Date: 20240326
  Transmission Date: 20240410
  Serious: Yes (Other)
  Sender: FDA-Public Use
  Company Number: FR-SUN PHARMACEUTICAL INDUSTRIES LTD-2024RR-438536

PATIENT
  Age: 23 Year
  Sex: Male
  Weight: 120 kg

DRUGS (1)
  1. TILDRAKIZUMAB [Suspect]
     Active Substance: TILDRAKIZUMAB
     Indication: Psoriasis
     Dosage: 100 MILLIGRAM
     Route: 058
     Dates: start: 20231204

REACTIONS (3)
  - Pericarditis [Not Recovered/Not Resolved]
  - Pleuropericarditis [Not Recovered/Not Resolved]
  - Myopericarditis [Not Recovered/Not Resolved]

NARRATIVE: CASE EVENT DATE: 20240308
